FAERS Safety Report 12872375 (Version 1)
Quarter: 2016Q4

REPORT INFORMATION
  Report Type: Spontaneous
  Country: GB (occurrence: GB)
  Receive Date: 20161021
  Receipt Date: 20161021
  Transmission Date: 20170207
  Serious: Yes (Other)
  Sender: FDA-Public Use
  Company Number: GB-AMGEN-GBRSP2016142659

PATIENT
  Age: 60 Year
  Sex: Female

DRUGS (1)
  1. PROLIA [Suspect]
     Active Substance: DENOSUMAB
     Indication: OSTEOPOROSIS POSTMENOPAUSAL
     Dosage: UNK
     Route: 051
     Dates: start: 2014, end: 2015

REACTIONS (5)
  - Mouth ulceration [Recovered/Resolved]
  - Micturition urgency [Recovered/Resolved]
  - Food allergy [Recovered/Resolved]
  - Toothache [Recovered/Resolved]
  - Gait disturbance [Recovered/Resolved]
